FAERS Safety Report 5106176-5 (Version None)
Quarter: 2006Q3

REPORT INFORMATION
  Report Type: 
  Country: None (occurrence: None)
  Receive Date: 20060912
  Receipt Date: 20060830
  Transmission Date: 20061208
  Serious: Yes (Other)
  Sender: FDA-Public Use
  Company Number: 2006088930

PATIENT
  Age: 92 Year
  Sex: Female
  Weight: 50 kg

DRUGS (1)
  1. LYRICA [Suspect]
     Indication: EPILEPSY
     Dosage: 75 MG, ORAL
     Route: 048
     Dates: start: 20060628, end: 20060629

REACTIONS (2)
  - HALLUCINATION, VISUAL [None]
  - PSYCHOTIC DISORDER [None]
